FAERS Safety Report 5441395-X (Version None)
Quarter: 2007Q3

REPORT INFORMATION
  Report Type: 
  Country: None (occurrence: None)
  Receive Date: 20070903
  Receipt Date: 20070831
  Transmission Date: 20080115
  Serious: Yes (Life-Threatening, Hospitalization)
  Sender: FDA-Public Use
  Company Number: NL-BAYER-200714967GDS

PATIENT
  Age: 63 Year
  Sex: Female

DRUGS (1)
  1. NEXAVAR [Suspect]
     Indication: DRUG USE FOR UNKNOWN INDICATION
     Route: 048
     Dates: start: 20070807

REACTIONS (4)
  - ASTHENIA [None]
  - FATIGUE [None]
  - GASTROINTESTINAL INFLAMMATION [None]
  - LARGE INTESTINE PERFORATION [None]
